FAERS Safety Report 4377404-9 (Version None)
Quarter: 2004Q2

REPORT INFORMATION
  Report Type: 
  Country: None (occurrence: None)
  Receive Date: 20040609
  Receipt Date: 20040430
  Transmission Date: 20050107
  Serious: No
  Sender: FDA-Public Use
  Company Number: 2004211576US

PATIENT
  Age: 46 Year
  Sex: Female

DRUGS (3)
  1. BEXTRA [Suspect]
     Indication: ARTHRITIS
     Dosage: 10 MG, QD UNK
     Dates: start: 20040401
  2. SOMA [Concomitant]
  3. VALIUM [Concomitant]

REACTIONS (6)
  - EYELID OEDEMA [None]
  - EYELIDS PRURITUS [None]
  - FEELING COLD [None]
  - HYPERSOMNIA [None]
  - PYREXIA [None]
  - URTICARIA [None]
